FAERS Safety Report 21204849 (Version 1)
Quarter: 2022Q3

REPORT INFORMATION
  Report Type: Spontaneous
  Country: US (occurrence: US)
  Receive Date: 20220812
  Receipt Date: 20220812
  Transmission Date: 20221026
  Serious: No
  Sender: FDA-Public Use
  Company Number: US-ALLERGAN-2142535US

PATIENT
  Sex: Female

DRUGS (1)
  1. VANIQA [Suspect]
     Active Substance: EFLORNITHINE HYDROCHLORIDE
     Indication: Hypertrichosis
     Dosage: UNK
     Dates: start: 20211005, end: 20211208

REACTIONS (2)
  - Hair growth abnormal [Not Recovered/Not Resolved]
  - Drug ineffective [Unknown]
